FAERS Safety Report 8453692-4 (Version None)
Quarter: 2012Q2

REPORT INFORMATION
  Report Type: 
  Country: None (occurrence: None)
  Receive Date: 20120620
  Receipt Date: 20120614
  Transmission Date: 20120825
  Serious: Yes (Other)
  Sender: FDA-Public Use
  Company Number: US-PFIZER INC-2012144060

PATIENT
  Sex: Female
  Weight: 77.098 kg

DRUGS (4)
  1. VENLAFAXINE HCL [Suspect]
     Indication: STRESS
  2. EFFEXOR XR [Suspect]
     Indication: STRESS
     Dosage: UNK
     Route: 048
  3. EFFEXOR XR [Suspect]
     Indication: DEPRESSION
     Dosage: 75 MG, 1X/DAY
     Route: 048
     Dates: end: 20110101
  4. VENLAFAXINE HCL [Suspect]
     Indication: DEPRESSION
     Dosage: UNK
     Dates: start: 20110101

REACTIONS (9)
  - PYREXIA [None]
  - NAUSEA [None]
  - FLUSHING [None]
  - GENERAL PHYSICAL CONDITION NORMAL [None]
  - ARTHROPATHY [None]
  - HYPERSENSITIVITY [None]
  - ABDOMINAL DISCOMFORT [None]
  - THERAPEUTIC RESPONSE UNEXPECTED [None]
  - ARTHRITIS [None]
